FAERS Safety Report 20946912 (Version 1)
Quarter: 2022Q2

REPORT INFORMATION
  Report Type: Spontaneous
  Country: FR (occurrence: FR)
  Receive Date: 20220610
  Receipt Date: 20220610
  Transmission Date: 20220721
  Serious: Yes (Other)
  Sender: FDA-Public Use
  Company Number: FR-009507513-2206FRA002315

PATIENT
  Age: 46 Year
  Sex: Male

DRUGS (1)
  1. PEMBROLIZUMAB [Suspect]
     Active Substance: PEMBROLIZUMAB
     Indication: Squamous cell carcinoma of head and neck
     Dosage: 200 MG, EVERY 3 WEEKS (TOTAL OF 3 CYCLES).

REACTIONS (2)
  - Tumour pseudoprogression [Not Recovered/Not Resolved]
  - Product prescribing error [Unknown]
